FAERS Safety Report 23615265 (Version 1)
Quarter: 2024Q1

REPORT INFORMATION
  Report Type: Spontaneous
  Country: US (occurrence: US)
  Receive Date: 20240311
  Receipt Date: 20240311
  Transmission Date: 20240409
  Serious: No
  Sender: FDA-Public Use
  Company Number: US-DRL-USA-LIT/USA/24/0003690

PATIENT
  Age: 16 Year
  Sex: Female

DRUGS (9)
  1. ONDANSETRON [Suspect]
     Active Substance: ONDANSETRON
     Indication: Wernicke-Korsakoff syndrome
  2. FAMOTIDINE [Suspect]
     Active Substance: FAMOTIDINE
     Indication: Wernicke-Korsakoff syndrome
  3. FOLIC ACID [Suspect]
     Active Substance: FOLIC ACID
     Indication: Wernicke-Korsakoff syndrome
  4. DOXYLAMINE SUCCINATE\PYRIDOXINE HYDROCHLORIDE [Suspect]
     Active Substance: DOXYLAMINE SUCCINATE\PYRIDOXINE HYDROCHLORIDE
     Indication: Wernicke-Korsakoff syndrome
     Dosage: THREE TIMES DAILY.
  5. VITAMIN B6 [Suspect]
     Active Substance: PYRIDOXINE HYDROCHLORIDE
     Indication: Wernicke-Korsakoff syndrome
  6. THIAMINE [Suspect]
     Active Substance: THIAMINE
     Indication: Wernicke-Korsakoff syndrome
     Dosage: INITIAL DOSE
     Route: 042
  7. THIAMINE [Suspect]
     Active Substance: THIAMINE
     Route: 042
  8. THIAMINE [Suspect]
     Active Substance: THIAMINE
     Route: 042
  9. THIAMINE [Suspect]
     Active Substance: THIAMINE
     Route: 042

REACTIONS (2)
  - Normal newborn [Recovered/Resolved]
  - Exposure during pregnancy [Recovered/Resolved]
